FAERS Safety Report 15327106 (Version 1)
Quarter: 2018Q3

REPORT INFORMATION
  Report Type: Spontaneous
  Country: IT (occurrence: IT)
  Receive Date: 20180828
  Receipt Date: 20180828
  Transmission Date: 20181010
  Serious: Yes (Other)
  Sender: FDA-Public Use
  Company Number: IT-TEVA-2018-IT-948877

PATIENT
  Age: 23 Year
  Sex: Female

DRUGS (2)
  1. SERTRALINE [Suspect]
     Active Substance: SERTRALINE HYDROCHLORIDE
     Indication: DEPRESSION
     Route: 048
  2. HALOPERIDOL. [Suspect]
     Active Substance: HALOPERIDOL
     Indication: PSYCHOTIC DISORDER
     Route: 048

REACTIONS (5)
  - Intentional self-injury [Unknown]
  - Dyskinesia [Unknown]
  - Intentional overdose [Unknown]
  - Muscle twitching [Unknown]
  - Hyperreflexia [Unknown]

NARRATIVE: CASE EVENT DATE: 20180810
